FAERS Safety Report 26085024 (Version 1)
Quarter: 2025Q4

REPORT INFORMATION
  Report Type: Spontaneous
  Country: EU (occurrence: EU)
  Receive Date: 20251125
  Receipt Date: 20251125
  Transmission Date: 20260118
  Serious: Yes (Life-Threatening, Hospitalization, Other)
  Sender: BAXTER
  Company Number: None

PATIENT
  Age: 43 Year
  Sex: Male
  Weight: 92 kg

DRUGS (3)
  1. SODIUM CHLORIDE [Suspect]
     Active Substance: SODIUM CHLORIDE
     Dosage: TOTAL, SIMULTANEOUSLY WITH PROPOFOL MCT/LCT FRESENIUS
     Route: 065
     Dates: start: 20251018, end: 20251018
  2. PROPOFOL [Suspect]
     Active Substance: PROPOFOL
     Indication: Sedative therapy
     Dosage: 180 MG, TOTAL, SIMULTANEOUSLY WITH CHLORID SODN? BAXTER 0,9%
     Route: 042
     Dates: start: 20251018, end: 20251018
  3. MAGNESIUM SULFATE\POTASSIUM SULFATE\SODIUM SULFATE [Concomitant]
     Active Substance: MAGNESIUM SULFATE\POTASSIUM SULFATE\SODIUM SULFATE
     Indication: Colonoscopy
     Dosage: UNK
     Route: 065
     Dates: start: 202510, end: 202510

REACTIONS (12)
  - Sepsis [Recovering/Resolving]
  - Tachypnoea [Recovering/Resolving]
  - Dyspnoea [Recovering/Resolving]
  - Seizure [Unknown]
  - Fatigue [Recovering/Resolving]
  - Tachycardia [Recovering/Resolving]
  - Chills [Recovering/Resolving]
  - Pyrexia [Recovering/Resolving]
  - Hypotension [Recovering/Resolving]
  - Gastrooesophageal reflux disease [Unknown]
  - Haemorrhoids [Unknown]
  - Suspected product quality issue [Unknown]

NARRATIVE: CASE EVENT DATE: 20251018
